FAERS Safety Report 15602609 (Version 1)
Quarter: 2018Q4

REPORT INFORMATION
  Report Type: Spontaneous
  Country: US (occurrence: US)
  Receive Date: 20181109
  Receipt Date: 20181109
  Transmission Date: 20190205
  Serious: No
  Sender: FDA-Public Use
  Company Number: US-SA-2018SA077910

PATIENT
  Sex: Female

DRUGS (10)
  1. NORTRIPTYLIN [Concomitant]
     Active Substance: NORTRIPTYLINE
  2. GABAPENTIN. [Concomitant]
     Active Substance: GABAPENTIN
  3. AUBAGIO [Suspect]
     Active Substance: TERIFLUNOMIDE
     Dosage: 7 MG,QD
     Route: 048
     Dates: start: 201801
  4. AMLODIPINE BESILATE [Concomitant]
     Active Substance: AMLODIPINE BESYLATE
  5. VITAMIN D [COLECALCIFEROL] [Concomitant]
  6. AVAPRO [Concomitant]
     Active Substance: IRBESARTAN
  7. SYNTHROID [Concomitant]
     Active Substance: LEVOTHYROXINE SODIUM
  8. CALCIUM [Concomitant]
     Active Substance: CALCIUM
  9. LORAZEPAM. [Concomitant]
     Active Substance: LORAZEPAM
  10. TRAMADOL HYDROCHLORIDE. [Concomitant]
     Active Substance: TRAMADOL HYDROCHLORIDE

REACTIONS (5)
  - Alopecia [Not Recovered/Not Resolved]
  - Balance disorder [Not Recovered/Not Resolved]
  - Hypoaesthesia [Not Recovered/Not Resolved]
  - Back pain [Not Recovered/Not Resolved]
  - Drug ineffective [Unknown]
